FAERS Safety Report 5505089-4 (Version None)
Quarter: 2007Q4

REPORT INFORMATION
  Report Type: 
  Country: None (occurrence: None)
  Receive Date: 20071102
  Receipt Date: 20071019
  Transmission Date: 20080405
  Serious: Yes (Congenital Anomaly)
  Sender: FDA-Public Use
  Company Number: MY-ASTRAZENECA-2007AP06802

PATIENT
  Sex: Male
  Weight: 3.4 kg

DRUGS (3)
  1. SEROQUEL [Suspect]
     Route: 064
     Dates: start: 20060404, end: 20070108
  2. EPILIM [Concomitant]
     Route: 064
     Dates: start: 20070109, end: 20070228
  3. RISPERIDONE [Concomitant]
     Route: 064
     Dates: start: 20070109, end: 20070116

REACTIONS (1)
  - CARDIOVASCULAR DISORDER [None]
